FAERS Safety Report 4315503-8 (Version None)
Quarter: 2004Q1

REPORT INFORMATION
  Report Type: 
  Country: None (occurrence: None)
  Receive Date: 20040311
  Receipt Date: 20040304
  Transmission Date: 20041129
  Serious: Yes (Hospitalization)
  Sender: FDA-Public Use
  Company Number: WAES 0403USA00392

PATIENT
  Age: 70 Year

DRUGS (3)
  1. [THERAPY UNSPECIFIED] [Concomitant]
  2. ZETIA [Suspect]
     Indication: BLOOD CHOLESTEROL INCREASED
     Route: 048
  3. STATIN (UNSPECIFIED) [Concomitant]

REACTIONS (1)
  - IDIOPATHIC THROMBOCYTOPENIC PURPURA [None]
